FAERS Safety Report 4322678-3 (Version None)
Quarter: 2004Q1

REPORT INFORMATION
  Report Type: 
  Country: None (occurrence: None)
  Receive Date: 20040319
  Receipt Date: 20040308
  Transmission Date: 20041129
  Serious: Yes (Other)
  Sender: FDA-Public Use
  Company Number: AU-JNJFOC-20040201902

PATIENT
  Age: 53 Year
  Sex: Female

DRUGS (6)
  1. RISPERDAL CONSTA [Suspect]
     Indication: SCHIZOPHRENIA
     Dosage: 25 MG, 1 IN 2 WEEK, INTRAMUSCULAR
     Route: 030
     Dates: start: 20040202
  2. HALDOL [Suspect]
     Indication: SCHIZOPHRENIA
  3. MIRTAZEPINE (MIRTAZAPINE) UNSPECIFIED [Suspect]
     Dosage: 30 MG, IN 1 DAY, ORAL
     Route: 048
  4. VALPROATE SODIUM [Concomitant]
  5. ATORVASTATIN [Concomitant]
  6. BENZTROPINE MESYLATE [Concomitant]

REACTIONS (6)
  - ALANINE AMINOTRANSFERASE INCREASED [None]
  - DEPRESSION [None]
  - MUTISM [None]
  - REFUSAL OF TREATMENT BY PATIENT [None]
  - TARDIVE DYSKINESIA [None]
  - TREATMENT NONCOMPLIANCE [None]
